FAERS Safety Report 9238433 (Version 1)
Quarter: 2013Q2

REPORT INFORMATION
  Report Type: Spontaneous
  Country: US (occurrence: None)
  Receive Date: 20130417
  Receipt Date: 20130417
  Transmission Date: 20140414
  Serious: Yes (Other)
  Sender: FDA-Public Use
  Company Number: None

PATIENT
  Sex: 0

DRUGS (1)
  1. TRIAMCINOLONE ACETONIDE [Suspect]
     Indication: LICHEN SCLEROSUS
     Dosage: THIN FILM X2 DAILY ?2 DAYS

REACTIONS (3)
  - Skin disorder [None]
  - Application site reaction [None]
  - Wound [None]
